FAERS Safety Report 15138142 (Version 1)
Quarter: 2018Q4

REPORT INFORMATION
  Report Type: Spontaneous
  Country: AU (occurrence: AU)
  Receive Date: 20180713
  Receipt Date: 20180713
  Transmission Date: 20190204
  Serious: Yes (Life-Threatening, Other)
  Sender: FDA-Public Use
  Company Number: AU-LUPIN PHARMACEUTICALS INC.-2018-04172

PATIENT
  Age: 23 Year
  Sex: Female

DRUGS (2)
  1. POTASSIUM CHLORIDE ER TABLETS 10 MEQ [Suspect]
     Active Substance: POTASSIUM CHLORIDE
     Indication: PRODUCT USED FOR UNKNOWN INDICATION
     Dosage: 200 DF, SINGLE
     Route: 048
  2. DIAZEPAM. [Suspect]
     Active Substance: DIAZEPAM
     Indication: PRODUCT USED FOR UNKNOWN INDICATION
     Dosage: 250 MG, SINGLE
     Route: 048

REACTIONS (4)
  - Overdose [Unknown]
  - Toxicity to various agents [Unknown]
  - Electrocardiogram T wave abnormal [Unknown]
  - Hyperkalaemia [Unknown]
